FAERS Safety Report 18359613 (Version 1)
Quarter: 2020Q4

REPORT INFORMATION
  Report Type: Spontaneous
  Country: NZ (occurrence: NZ)
  Receive Date: 20201008
  Receipt Date: 20201008
  Transmission Date: 20210114
  Serious: Yes (Life-Threatening, Hospitalization)
  Sender: FDA-Public Use
  Company Number: NZ-MYLANLABS-2020M1084032

PATIENT
  Age: 15 Year
  Sex: Male
  Weight: 49.2 kg

DRUGS (23)
  1. CEFTAZIDIME. [Concomitant]
     Active Substance: CEFTAZIDIME
     Indication: BRONCHOPULMONARY ASPERGILLOSIS ALLERGIC
     Dosage: UNK
     Route: 042
  2. CETIRIZINE [Concomitant]
     Active Substance: CETIRIZINE HYDROCHLORIDE
     Indication: BRONCHOPULMONARY ASPERGILLOSIS ALLERGIC
     Dosage: 10 MILLIGRAM, QD
     Route: 048
  3. INSULIN GLARGINE [Concomitant]
     Active Substance: INSULIN GLARGINE
     Indication: CYSTIC FIBROSIS RELATED DIABETES
     Dosage: 10 UNITS DAILY
     Route: 065
  4. PREDNISONE. [Interacting]
     Active Substance: PREDNISONE
     Dosage: 5 MILLIGRAM, QD
     Route: 048
  5. SERETIDE [Interacting]
     Active Substance: FLUTICASONE PROPIONATE\SALMETEROL XINAFOATE
     Indication: BRONCHOPULMONARY ASPERGILLOSIS ALLERGIC
     Dosage: UNK
     Route: 065
  6. HYPERTONIC SALINE SOLUTION [Concomitant]
     Active Substance: SODIUM CHLORIDE
     Indication: BRONCHOPULMONARY ASPERGILLOSIS ALLERGIC
     Dosage: 4 MILLILITER, BID,
  7. ISOPHANE INSULIN [Concomitant]
     Active Substance: INSULIN NOS
     Indication: CYSTIC FIBROSIS RELATED DIABETES
     Dosage: 5 UNITS DAILY
     Route: 065
  8. FERROUS SULFATE. [Concomitant]
     Active Substance: FERROUS SULFATE
     Indication: BRONCHOPULMONARY ASPERGILLOSIS ALLERGIC
     Dosage: 325 MILLIGRAM, QD
     Route: 048
  9. MACROGOL [Concomitant]
     Active Substance: POLYETHYLENE GLYCOLS
     Indication: BRONCHOPULMONARY ASPERGILLOSIS ALLERGIC
     Dosage: ONCE DAILY
     Route: 048
  10. ITRACONAZOLE. [Suspect]
     Active Substance: ITRACONAZOLE
     Indication: BRONCHOPULMONARY ASPERGILLOSIS ALLERGIC
     Dosage: 100 MILLIGRAM, QD
     Route: 048
  11. FLIXOTIDE [Interacting]
     Active Substance: FLUTICASONE PROPIONATE
     Indication: BRONCHOPULMONARY ASPERGILLOSIS ALLERGIC
     Dosage: 125 MICROGRAM, BID, 2 PUFFS INHALATION BID
  12. PREDNISONE. [Interacting]
     Active Substance: PREDNISONE
     Indication: BRONCHOPULMONARY ASPERGILLOSIS ALLERGIC
     Dosage: 40 MILLIGRAM, QD
     Route: 048
  13. PREDNISONE. [Interacting]
     Active Substance: PREDNISONE
     Dosage: 20 MILLIGRAM, QD
     Route: 048
  14. ZINC. [Concomitant]
     Active Substance: ZINC
     Indication: BRONCHOPULMONARY ASPERGILLOSIS ALLERGIC
     Dosage: 15 MILLIGRAM, QD
     Route: 048
  15. FLIXONASE [Interacting]
     Active Substance: FLUTICASONE PROPIONATE
     Indication: BRONCHOPULMONARY ASPERGILLOSIS ALLERGIC
     Dosage: 50 MICROGRAM/SPRAY, 1 SPRAY IN EACH NOSTRIL TWICE A DAY
     Route: 045
  16. TOBRAMYCIN. [Concomitant]
     Active Substance: TOBRAMYCIN
     Indication: BRONCHOPULMONARY ASPERGILLOSIS ALLERGIC
     Dosage: UNK
     Route: 065
  17. TESTOSTERONE. [Concomitant]
     Active Substance: TESTOSTERONE
     Indication: BRONCHOPULMONARY ASPERGILLOSIS ALLERGIC
     Dosage: 50 MILLIGRAM, MONTHLY
     Route: 030
  18. VITAMIN A                          /00056001/ [Concomitant]
     Active Substance: RETINOL
     Indication: BRONCHOPULMONARY ASPERGILLOSIS ALLERGIC
     Dosage: 10,000 UNITS/DAY
     Route: 048
  19. SALBUTAMOL [Concomitant]
     Active Substance: ALBUTEROL
     Indication: BRONCHOPULMONARY ASPERGILLOSIS ALLERGIC
     Dosage: 100 MICROGRAM, 2 PUFFS BID
  20. GLUCOSE [Interacting]
     Active Substance: DEXTROSE
     Indication: PRODUCT USED FOR UNKNOWN INDICATION
     Dosage: HIGH GLUCOSE DRINKS
     Route: 048
  21. CREON [Concomitant]
     Active Substance: PANCRELIPASE AMYLASE\PANCRELIPASE LIPASE\PANCRELIPASE PROTEASE
     Indication: BRONCHOPULMONARY ASPERGILLOSIS ALLERGIC
     Dosage: UP TO 25 TABS DAILY
     Route: 048
  22. VITABDECK [Concomitant]
     Indication: BRONCHOPULMONARY ASPERGILLOSIS ALLERGIC
     Dosage: 4 CAPSULES ORAL DAILY
     Route: 048
  23. VITAMIN K [Concomitant]
     Active Substance: PHYTONADIONE
     Indication: BRONCHOPULMONARY ASPERGILLOSIS ALLERGIC
     Dosage: 10 MILLIGRAM, BIWEEKLY
     Route: 048

REACTIONS (2)
  - Drug interaction [Recovered/Resolved]
  - Hyperglycaemic hyperosmolar nonketotic syndrome [Recovered/Resolved]
